FAERS Safety Report 23648695 (Version 1)
Quarter: 2024Q1

REPORT INFORMATION
  Report Type: Other
  Country: JP (occurrence: JP)
  Receive Date: 20240319
  Receipt Date: 20240319
  Transmission Date: 20240410
  Serious: Yes (Life-Threatening, Hospitalization, Other)
  Sender: FDA-Public Use
  Company Number: JP-Merck Healthcare KGaA-2024014418

PATIENT
  Age: 3 Decade
  Sex: Female

DRUGS (2)
  1. METGLUCO [Suspect]
     Active Substance: METFORMIN HYDROCHLORIDE
     Indication: Diabetes mellitus
     Route: 048
  2. LEVOTHYROXINE [Suspect]
     Active Substance: LEVOTHYROXINE\LEVOTHYROXINE SODIUM
     Indication: Hypothyroidism
     Route: 048

REACTIONS (7)
  - Cardiac arrest [Recovering/Resolving]
  - Ventricular fibrillation [Recovering/Resolving]
  - Shock [Unknown]
  - Lactic acidosis [Recovered/Resolved]
  - Overdose [Unknown]
  - Hyperkalaemia [Unknown]
  - Hyperglycaemia [Unknown]
